FAERS Safety Report 8388927-X (Version None)
Quarter: 2012Q2

REPORT INFORMATION
  Report Type: 
  Country: None (occurrence: None)
  Receive Date: 20120528
  Receipt Date: 20120523
  Transmission Date: 20120825
  Serious: No
  Sender: FDA-Public Use
  Company Number: US-BIOGENIDEC-2012BI018159

PATIENT
  Sex: Female

DRUGS (1)
  1. TYSABRI [Suspect]
     Indication: MULTIPLE SCLEROSIS
     Route: 042
     Dates: start: 20120307

REACTIONS (8)
  - AMNESIA [None]
  - BALANCE DISORDER [None]
  - FEELING ABNORMAL [None]
  - APHAGIA [None]
  - WEIGHT DECREASED [None]
  - DYSSTASIA [None]
  - VISUAL ACUITY REDUCED [None]
  - DIZZINESS [None]
